FAERS Safety Report 6112471-3 (Version None)
Quarter: 2009Q1

REPORT INFORMATION
  Report Type: 
  Country: None (occurrence: None)
  Receive Date: 20090312
  Receipt Date: 20090309
  Transmission Date: 20090719
  Serious: No
  Sender: FDA-Public Use
  Company Number: KR-JNJFOC-20090302428

PATIENT
  Age: 59 Year
  Sex: Female

DRUGS (3)
  1. DURAGESIC-100 [Suspect]
     Indication: INTERVERTEBRAL DISC DISORDER
     Dosage: HALF A PATCH
     Route: 062
  2. UNKNOWN DRUG [Concomitant]
     Indication: OSTEOPOROSIS
     Route: 048
  3. UNKNOWN DRUG [Concomitant]
     Indication: MEDICAL DIET
     Route: 048

REACTIONS (6)
  - CONSTIPATION [None]
  - DIZZINESS [None]
  - DRUG ADMINISTRATION ERROR [None]
  - DYSPNOEA [None]
  - NAUSEA [None]
  - VOMITING [None]
